FAERS Safety Report 12907756 (Version 1)
Quarter: 2016Q4

REPORT INFORMATION
  Report Type: Spontaneous
  Country: HR (occurrence: HR)
  Receive Date: 20161103
  Receipt Date: 20161103
  Transmission Date: 20170207
  Serious: Yes (Other)
  Sender: FDA-Public Use
  Company Number: HR-AMGEN-HRVSP2016152206

PATIENT
  Age: 50 Year
  Sex: Female

DRUGS (9)
  1. VECTIBIX [Suspect]
     Active Substance: PANITUMUMAB
     Indication: ADENOCARCINOMA
     Dosage: UNK
     Route: 065
     Dates: start: 201307, end: 201309
  2. FOLINIC ACID [Concomitant]
     Active Substance: LEUCOVORIN
     Dosage: UNK
     Dates: start: 201606
  3. FLUOROURACIL. [Concomitant]
     Active Substance: FLUOROURACIL
     Dosage: UNK
     Dates: start: 201606
  4. IRINOTECAN [Concomitant]
     Active Substance: IRINOTECAN
     Dosage: UNK
     Dates: start: 201606
  5. PAMIDRONATE [Concomitant]
     Active Substance: PAMIDRONATE DISODIUM
     Dosage: UNK
  6. FLUOROURACIL. [Concomitant]
     Active Substance: FLUOROURACIL
     Indication: ADENOCARCINOMA
     Dosage: UNK
     Dates: start: 201307, end: 201309
  7. FOLINIC ACID [Concomitant]
     Active Substance: LEUCOVORIN
     Indication: ADENOCARCINOMA
     Dosage: UNK
     Dates: start: 201307, end: 201309
  8. VECTIBIX [Suspect]
     Active Substance: PANITUMUMAB
     Dosage: UNK
     Route: 065
     Dates: start: 201606
  9. IRINOTECAN [Concomitant]
     Active Substance: IRINOTECAN
     Indication: ADENOCARCINOMA
     Dosage: UNK
     Dates: start: 201307, end: 201309

REACTIONS (16)
  - Metastases to bone [Not Recovered/Not Resolved]
  - Metastases to the mediastinum [Not Recovered/Not Resolved]
  - Diarrhoea [Unknown]
  - Bone pain [Unknown]
  - Hepatic neoplasm [Unknown]
  - Metastases to lung [Unknown]
  - Adenocarcinoma of colon [Unknown]
  - Rash [Unknown]
  - Ascites [Unknown]
  - Metastases to lymph nodes [Not Recovered/Not Resolved]
  - Weight decreased [Unknown]
  - Pelvic neoplasm [Unknown]
  - Carbohydrate antigen 19-9 increased [Not Recovered/Not Resolved]
  - Fatigue [Unknown]
  - Lymphadenopathy [Unknown]
  - Nail disorder [Unknown]

NARRATIVE: CASE EVENT DATE: 2013
